FAERS Safety Report 16393067 (Version 4)
Quarter: 2019Q2

REPORT INFORMATION
  Report Type: Report from Study
  Country: IL (occurrence: IL)
  Receive Date: 20190605
  Receipt Date: 20190627
  Transmission Date: 20190711
  Serious: Yes (Other)
  Sender: FDA-Public Use
  Company Number: IL-EMD SERONO-9092657

PATIENT
  Sex: Male

DRUGS (2)
  1. REBIF [Suspect]
     Active Substance: INTERFERON BETA-1A
     Indication: RELAPSING-REMITTING MULTIPLE SCLEROSIS
     Route: 058
     Dates: start: 20050705
  2. REBIF [Suspect]
     Active Substance: INTERFERON BETA-1A
     Route: 058
     Dates: start: 2019

REACTIONS (8)
  - Cutaneous calcification [Not Recovered/Not Resolved]
  - Lack of injection site rotation [Unknown]
  - Injection site atrophy [Not Recovered/Not Resolved]
  - Injection site cellulitis [Not Recovered/Not Resolved]
  - Panniculitis [Recovering/Resolving]
  - Calcification of muscle [Not Recovered/Not Resolved]
  - Hypoaesthesia [Unknown]
  - Influenza like illness [Recovered/Resolved]
